FAERS Safety Report 9980429 (Version 1)
Quarter: 2014Q1

REPORT INFORMATION
  Report Type: Spontaneous
  Country: US (occurrence: US)
  Receive Date: 20140307
  Receipt Date: 20140307
  Transmission Date: 20141002
  Serious: No
  Sender: FDA-Public Use
  Company Number: US-ABBVIE-13P-163-1175080-00

PATIENT
  Age: 71 Year
  Sex: Female
  Weight: 72.64 kg

DRUGS (15)
  1. HUMIRA [Suspect]
     Indication: PSORIATIC ARTHROPATHY
     Dates: start: 20111209
  2. TENORMIN [Concomitant]
     Indication: HYPERTENSION
  3. HYDROCHLOROTHIAZIDE [Concomitant]
     Indication: HYPERTENSION
  4. NORVASC [Concomitant]
     Indication: HYPERTENSION
  5. MOBIC [Concomitant]
     Indication: OSTEOARTHRITIS
  6. COLCHICINE [Concomitant]
     Indication: GOUT
  7. ULORIC [Concomitant]
     Indication: GOUT
  8. FLOVENT [Concomitant]
     Indication: ASTHMA
  9. VENTOLIN [Concomitant]
     Indication: ASTHMA
  10. FLUTICASONE [Concomitant]
     Indication: NASAL OBSTRUCTION
  11. POTASSIUM [Concomitant]
     Indication: HYPOKALAEMIA
  12. PROBIOTIC [Concomitant]
     Indication: GASTROINTESTINAL DISORDER
  13. CALCITRATE [Concomitant]
     Indication: OSTEOPENIA
  14. VITAMIN C [Concomitant]
     Indication: VITAMIN SUPPLEMENTATION
  15. MULTIVITAMIN [Concomitant]
     Indication: VITAMIN SUPPLEMENTATION

REACTIONS (6)
  - Fatigue [Not Recovered/Not Resolved]
  - Malaise [Not Recovered/Not Resolved]
  - Injection site induration [Not Recovered/Not Resolved]
  - Injection site erythema [Not Recovered/Not Resolved]
  - Injection site pruritus [Not Recovered/Not Resolved]
  - Unevaluable event [Not Recovered/Not Resolved]
